FAERS Safety Report 9017511 (Version 1)
Quarter: 2013Q1

REPORT INFORMATION
  Report Type: Other
  Country: GB (occurrence: GB)
  Receive Date: 20130117
  Receipt Date: 20130117
  Transmission Date: 20140127
  Serious: Yes (Other)
  Sender: FDA-Public Use
  Company Number: GB-WATSON-2013-00419

PATIENT
  Age: 66 Year
  Sex: Male
  Weight: 118 kg

DRUGS (6)
  1. PIOGLITAZONE (UNKNOWN) [Suspect]
     Indication: PRODUCT USED FOR UNKNOWN INDICATION
     Dosage: 30 MG, DAILY
     Route: 065
     Dates: start: 20071023, end: 20111124
  2. RANITIDINE [Concomitant]
     Indication: DYSPEPSIA
     Dosage: 300 MG, UNKNOWN
     Route: 048
     Dates: start: 20060424, end: 20111117
  3. FUROSEMIDE [Concomitant]
     Indication: ESSENTIAL HYPERTENSION
     Dosage: 20 MG, UNKNOWN
     Route: 048
     Dates: start: 20100113
  4. JANUVIA [Concomitant]
     Indication: DIABETES MELLITUS
     Dosage: 100 MG, UNKNOWN
     Route: 048
     Dates: start: 20110802, end: 20110902
  5. RAMIPRIL [Concomitant]
     Indication: HYPERTENSION
     Dosage: 5 MG, UNKNOWN
     Route: 048
     Dates: start: 20070308
  6. GLUCOPHAGE [Concomitant]
     Indication: DIABETES MELLITUS
     Dosage: 500 MG, UNKNOWN
     Route: 048
     Dates: start: 20091020

REACTIONS (3)
  - Bladder neoplasm [Not Recovered/Not Resolved]
  - Neoplasm malignant [Not Recovered/Not Resolved]
  - Haematuria [Not Recovered/Not Resolved]
